FAERS Safety Report 5501923-2 (Version None)
Quarter: 2007Q4

REPORT INFORMATION
  Report Type: 
  Country: None (occurrence: None)
  Receive Date: 20071030
  Receipt Date: 20071019
  Transmission Date: 20080405
  Serious: Yes (Other)
  Sender: FDA-Public Use
  Company Number: ES-SP-2007-03547

PATIENT

DRUGS (1)
  1. IMMUCYST [Suspect]

REACTIONS (1)
  - PNEUMONITIS [None]
